FAERS Safety Report 8485945-8 (Version None)
Quarter: 2012Q2

REPORT INFORMATION
  Report Type: 
  Country: None (occurrence: None)
  Receive Date: 20120626
  Receipt Date: 20120611
  Transmission Date: 20120825
  Serious: Yes (Death, Hospitalization)
  Sender: FDA-Public Use
  Company Number: ADR-2012-01159

PATIENT
  Age: 65 Year
  Sex: Female

DRUGS (1)
  1. BACLOFEN [Suspect]
     Dosage: 75 MCG/DAY

REACTIONS (1)
  - RESPIRATORY FAILURE [None]
